FAERS Safety Report 15565578 (Version 2)
Quarter: 2018Q4

REPORT INFORMATION
  Report Type: Spontaneous
  Country: US (occurrence: US)
  Receive Date: 20181030
  Receipt Date: 20181227
  Transmission Date: 20190205
  Serious: No
  Sender: FDA-Public Use
  Company Number: US-ASTRAZENECA-2018SF30354

PATIENT
  Age: 738 Month
  Sex: Male
  Weight: 90.7 kg

DRUGS (6)
  1. FASENRA [Suspect]
     Active Substance: BENRALIZUMAB
     Indication: ASTHMA
     Dosage: 30MG/ML EVERY FOUR WEEKS
     Route: 058
     Dates: start: 20180906
  2. QVAR [Concomitant]
     Active Substance: BECLOMETHASONE DIPROPIONATE
     Indication: ASTHMA
     Route: 055
  3. FASENRA [Suspect]
     Active Substance: BENRALIZUMAB
     Indication: ASTHMA
     Dosage: EVERY 4 WEEKS FOR THE FIRST 3 DOSES, NOW ON EVERY 8 WEEKS30MG/ML EVERY EIGHT WEEKS
     Route: 058
  4. NORVASC [Concomitant]
     Active Substance: AMLODIPINE BESYLATE
     Indication: HYPERTENSION
     Route: 048
  5. NADOLOL. [Concomitant]
     Active Substance: NADOLOL
     Indication: HYPERTENSION
     Route: 048
  6. SPRIRIVA HANDIHALER [Concomitant]
     Indication: ASTHMA
     Route: 055

REACTIONS (6)
  - Diarrhoea [Unknown]
  - Autonomic nervous system imbalance [Unknown]
  - Blood pressure decreased [Unknown]
  - Feeling abnormal [Recovered/Resolved]
  - Abdominal discomfort [Unknown]
  - Nausea [Unknown]

NARRATIVE: CASE EVENT DATE: 201809
